FAERS Safety Report 10750630 (Version 1)
Quarter: 2015Q1

REPORT INFORMATION
  Report Type: Spontaneous
  Country: US (occurrence: None)
  Receive Date: 20150128
  Receipt Date: 20150128
  Transmission Date: 20150721
  Serious: Yes (Other)
  Sender: FDA-Public Use
  Company Number: A14-064-I

PATIENT
  Age: 44 Year
  Sex: Female

DRUGS (2)
  1. TMX, DP ,C, W [Suspect]
     Active Substance: ALLERGENIC EXTRACTS
     Indication: IMMUNE SYSTEM DISORDER
     Dates: start: 20141124
  2. SOG, DF, D, RW [Suspect]
     Active Substance: ALLERGENIC EXTRACTS
     Indication: IMMUNE SYSTEM DISORDER
     Dates: start: 20141124

REACTIONS (3)
  - Throat irritation [None]
  - Chest discomfort [None]
  - Nasal congestion [None]

NARRATIVE: CASE EVENT DATE: 20141124
